FAERS Safety Report 6511239-3 (Version None)
Quarter: 2009Q4

REPORT INFORMATION
  Report Type: 
  Country: None (occurrence: None)
  Receive Date: 20091222
  Receipt Date: 20090317
  Transmission Date: 20100525
  Serious: No
  Sender: FDA-Public Use
  Company Number: US-ASTRAZENECA-2009UW06836

PATIENT
  Age: 86 Year
  Sex: Female
  Weight: 52.2 kg

DRUGS (6)
  1. CRESTOR [Suspect]
     Route: 048
     Dates: start: 20090224
  2. SPIRONOLACTONE [Concomitant]
  3. THERAGRAM M VITAMIN [Concomitant]
  4. COREG [Concomitant]
  5. COUMADIN [Concomitant]
  6. OMEGA XL [Concomitant]

REACTIONS (1)
  - BLOOD CHOLESTEROL INCREASED [None]
